FAERS Safety Report 4626034-X (Version None)
Quarter: 2005Q1

REPORT INFORMATION
  Report Type: 
  Country: None (occurrence: None)
  Receive Date: 20050330
  Receipt Date: 20050317
  Transmission Date: 20050727
  Serious: Yes (Hospitalization, Disabling, Other)
  Sender: FDA-Public Use
  Company Number: 2005047282

PATIENT
  Age: 54 Year
  Sex: Female
  Weight: 55.3388 kg

DRUGS (5)
  1. DIFLUCAN [Suspect]
     Indication: FUNGAL INFECTION
     Dosage: 250 MG (250 MG, INTERVAL: TXW)
     Dates: end: 20050101
  2. FENTANYL [Concomitant]
  3. MUSCLE RELAXANTS                 (MUSCLE RELAXANTS) [Concomitant]
  4. ANVOLAR             (ETHINYLESTRADIOL, NORETHISTERONE ACETATE) [Concomitant]
  5. ASPIRIN [Concomitant]

REACTIONS (10)
  - CARDIAC DISORDER [None]
  - CLOSTRIDIUM DIFFICILE SEPSIS [None]
  - DEEP VEIN THROMBOSIS [None]
  - DEHYDRATION [None]
  - DIARRHOEA [None]
  - DRUG INEFFECTIVE [None]
  - HIP FRACTURE [None]
  - ROAD TRAFFIC ACCIDENT [None]
  - SPINAL FRACTURE [None]
  - WEIGHT DECREASED [None]
